FAERS Safety Report 7905004-X (Version None)
Quarter: 2011Q4

REPORT INFORMATION
  Report Type: 
  Country: None (occurrence: None)
  Receive Date: 20111109
  Receipt Date: 20111102
  Transmission Date: 20120403
  Serious: Yes (Hospitalization)
  Sender: FDA-Public Use
  Company Number: PHEH2011US04735

PATIENT
  Sex: Female
  Weight: 58.957 kg

DRUGS (5)
  1. GILENYA [Suspect]
     Indication: RELAPSING-REMITTING MULTIPLE SCLEROSIS
     Dosage: 0.5 MG, DAILY
     Route: 048
     Dates: start: 20110901, end: 20111027
  2. LISINOPRIL AND HYDROCHLOROTHIAZIDE [Concomitant]
     Dosage: 20/25 MG, UNK
  3. SIMVASTATIN [Concomitant]
     Dosage: 20 MG, UNK
  4. FAMPRIDINE [Concomitant]
     Dosage: UNK UKN, UNK
  5. EFFEXOR XR [Concomitant]
     Dosage: 150 MG, UNK

REACTIONS (12)
  - DYSKINESIA [None]
  - GAIT DISTURBANCE [None]
  - URINE COLOUR ABNORMAL [None]
  - FEELING HOT [None]
  - PAIN [None]
  - MULTIPLE SCLEROSIS [None]
  - HAEMATURIA [None]
  - EYE DISORDER [None]
  - ABDOMINAL PAIN UPPER [None]
  - PAIN IN EXTREMITY [None]
  - FACIAL PAIN [None]
  - TRIGEMINAL NEURALGIA [None]
